FAERS Safety Report 18154822 (Version 1)
Quarter: 2020Q3

REPORT INFORMATION
  Report Type: Spontaneous
  Country: US (occurrence: US)
  Receive Date: 20200817
  Receipt Date: 20200817
  Transmission Date: 20201103
  Serious: No
  Sender: FDA-Public Use
  Company Number: US-009507513-2008USA008054

PATIENT
  Sex: Female

DRUGS (1)
  1. NUVARING [Suspect]
     Active Substance: ETHINYL ESTRADIOL\ETONOGESTREL
     Dosage: 3 RINGS
     Route: 067

REACTIONS (3)
  - Device expulsion [Unknown]
  - Withdrawal bleed [Unknown]
  - Device expulsion [Unknown]

NARRATIVE: CASE EVENT DATE: 202006
